FAERS Safety Report 8844764 (Version 1)
Quarter: 2012Q4

REPORT INFORMATION
  Report Type: Spontaneous
  Country: US (occurrence: None)
  Receive Date: 20121015
  Receipt Date: 20121015
  Transmission Date: 20130627
  Serious: No
  Sender: FDA-Public Use
  Company Number: AEUSA201200219

PATIENT
  Age: 28 Year
  Sex: Female
  Weight: 66.68 kg

DRUGS (2)
  1. HYPERRAB S/D [Suspect]
     Indication: INFECTION PROPHYLAXIS
     Route: 030
     Dates: start: 20120419, end: 20120419
  2. RABAVERT [Suspect]
     Indication: VACCINATION
     Route: 030
     Dates: start: 20120419, end: 20120419

REACTIONS (3)
  - Drug administration error [None]
  - Injection site pain [None]
  - No adverse event [None]
